FAERS Safety Report 21045932 (Version 1)
Quarter: 2022Q3

REPORT INFORMATION
  Report Type: Spontaneous
  Country: US (occurrence: US)
  Receive Date: 20220706
  Receipt Date: 20220706
  Transmission Date: 20221026
  Serious: No
  Sender: FDA-Public Use
  Company Number: US-BAUSCH-BL-2022-016673

PATIENT
  Age: 58 Year
  Sex: Female

DRUGS (2)
  1. BUDESONIDE [Suspect]
     Active Substance: BUDESONIDE
     Indication: Irritable bowel syndrome
     Route: 048
     Dates: start: 20220627, end: 202206
  2. SULFASALAZINE [Concomitant]
     Active Substance: SULFASALAZINE
     Indication: Irritable bowel syndrome

REACTIONS (2)
  - Middle insomnia [Unknown]
  - Product residue present [Unknown]

NARRATIVE: CASE EVENT DATE: 20220601
